FAERS Safety Report 19304918 (Version 1)
Quarter: 2021Q2

REPORT INFORMATION
  Report Type: Spontaneous
  Country: US (occurrence: US)
  Receive Date: 20210525
  Receipt Date: 20210525
  Transmission Date: 20210717
  Serious: Yes (Other)
  Sender: FDA-Public Use
  Company Number: US-GLAXOSMITHKLINE-US2021GSK108439

PATIENT
  Sex: Female

DRUGS (12)
  1. ZANTAC [Suspect]
     Active Substance: RANITIDINE HYDROCHLORIDE
     Indication: DYSPEPSIA
     Dosage: 75 MG, 4?5 DAYS A WEEK
     Route: 065
     Dates: start: 201301, end: 201601
  2. ZANTAC [Suspect]
     Active Substance: RANITIDINE HYDROCHLORIDE
     Dosage: 300 MG, 4?5 DAYS A WEEK
     Route: 065
     Dates: start: 201301, end: 201601
  3. ZANTAC [Suspect]
     Active Substance: RANITIDINE HYDROCHLORIDE
     Dosage: 300 MG, 4?5 DAYS A WEEK
     Route: 065
     Dates: start: 201301, end: 201601
  4. RANITIDINE CAPSULE [Suspect]
     Active Substance: RANITIDINE
     Indication: GASTROOESOPHAGEAL REFLUX DISEASE
     Dosage: 150 MG, 4?5 DAYS A WEEK
     Route: 065
     Dates: start: 201301, end: 201601
  5. ZANTAC [Suspect]
     Active Substance: RANITIDINE HYDROCHLORIDE
     Indication: DYSPEPSIA
     Dosage: 75 MG, 4?5 DAYS A WEEK
     Route: 065
     Dates: start: 201301, end: 201601
  6. ZANTAC [Suspect]
     Active Substance: RANITIDINE HYDROCHLORIDE
     Indication: GASTROOESOPHAGEAL REFLUX DISEASE
     Dosage: 150 MG, 4?5 DAYS A WEEK
     Route: 065
     Dates: start: 201301, end: 201601
  7. ZANTAC [Suspect]
     Active Substance: RANITIDINE HYDROCHLORIDE
     Indication: GASTROOESOPHAGEAL REFLUX DISEASE
     Dosage: 150 MG, 4?5 DAYS A WEEK
     Route: 065
     Dates: start: 201301, end: 201601
  8. ZANTAC [Suspect]
     Active Substance: RANITIDINE HYDROCHLORIDE
     Dosage: 300 MG, 4?5 DAYS A WEEK
     Route: 065
     Dates: start: 201301, end: 201601
  9. RANITIDINE CAPSULE [Suspect]
     Active Substance: RANITIDINE
     Indication: DYSPEPSIA
     Dosage: 75 MG, 4?5 DAYS A WEEK
     Route: 065
     Dates: start: 201301, end: 201601
  10. RANITIDINE CAPSULE [Suspect]
     Active Substance: RANITIDINE
     Dosage: 300 MG, 4?5 DAYS A WEEK
     Route: 065
     Dates: start: 201301, end: 201601
  11. ZANTAC [Suspect]
     Active Substance: RANITIDINE HYDROCHLORIDE
     Indication: DYSPEPSIA
     Dosage: 75 MG, 4?5 DAYS A WEEK
     Route: 065
     Dates: start: 201301, end: 201601
  12. ZANTAC [Suspect]
     Active Substance: RANITIDINE HYDROCHLORIDE
     Indication: GASTROOESOPHAGEAL REFLUX DISEASE
     Dosage: 150 MG, 4?5 DAYS A WEEK
     Route: 065
     Dates: start: 201301, end: 201601

REACTIONS (1)
  - Breast cancer [Unknown]
